FAERS Safety Report 6637182-7 (Version None)
Quarter: 2010Q1

REPORT INFORMATION
  Report Type: 
  Country: None (occurrence: None)
  Receive Date: 20100316
  Receipt Date: 20091218
  Transmission Date: 20100710
  Serious: No
  Sender: FDA-Public Use
  Company Number: US-ABBOTT-09P-163-0616117-00

PATIENT
  Sex: Female
  Weight: 73.094 kg

DRUGS (14)
  1. TRILIPIX [Suspect]
     Indication: BLOOD CHOLESTEROL INCREASED
     Dates: start: 20090801, end: 20091218
  2. CRESTOR [Concomitant]
     Indication: BLOOD CHOLESTEROL INCREASED
  3. XANAX [Concomitant]
     Indication: ANXIETY
  4. ATARA [Concomitant]
     Indication: DRUG USE FOR UNKNOWN INDICATION
  5. ENBREL [Concomitant]
     Indication: RHEUMATOID ARTHRITIS
  6. SINGULAIR [Concomitant]
     Indication: ASTHMA
  7. CYMICORT [Concomitant]
     Indication: DRUG USE FOR UNKNOWN INDICATION
  8. POTASSIUM [Concomitant]
     Indication: ELECTROLYTE SUBSTITUTION THERAPY
  9. NORVASC [Concomitant]
     Indication: HYPERTENSION
  10. NEXIUM [Concomitant]
     Indication: GASTROOESOPHAGEAL REFLUX DISEASE
  11. LOVOXYL [Concomitant]
     Indication: HYPOTHYROIDISM
  12. HUMALOG [Concomitant]
     Indication: TYPE 1 DIABETES MELLITUS
  13. PROZAC [Concomitant]
     Indication: DEPRESSION
  14. BUMEX [Concomitant]
     Indication: RENAL FAILURE

REACTIONS (1)
  - BLOOD CREATININE INCREASED [None]
